FAERS Safety Report 8379916-X (Version None)
Quarter: 2012Q2

REPORT INFORMATION
  Report Type: 
  Country: None (occurrence: None)
  Receive Date: 20120523
  Receipt Date: 20120521
  Transmission Date: 20120825
  Serious: Yes (Other)
  Sender: FDA-Public Use
  Company Number: US-PFIZER INC-2012123039

PATIENT
  Sex: Female

DRUGS (2)
  1. CHANTIX [Suspect]
     Dosage: UNK
     Dates: start: 20120520
  2. CHANTIX [Suspect]
     Dosage: UNK

REACTIONS (4)
  - AGITATION [None]
  - NEPHROLITHIASIS [None]
  - ABDOMINAL DISTENSION [None]
  - ILL-DEFINED DISORDER [None]
